FAERS Safety Report 16050549 (Version 1)
Quarter: 2019Q1

REPORT INFORMATION
  Report Type: Spontaneous
  Country: SE (occurrence: SE)
  Receive Date: 20190308
  Receipt Date: 20190308
  Transmission Date: 20190418
  Serious: Yes (Hospitalization)
  Sender: FDA-Public Use
  Company Number: SE-TEVA-2019-SE-1020286

PATIENT
  Age: 2 Year
  Sex: Female

DRUGS (1)
  1. LOPERAMIDE [Suspect]
     Active Substance: LOPERAMIDE
     Dosage: .5 MILLIGRAM DAILY; 0,5 MG DAGLIGEN
     Route: 048
     Dates: start: 201806

REACTIONS (3)
  - Accidental overdose [Unknown]
  - Abnormal behaviour [Unknown]
  - Fatigue [Unknown]

NARRATIVE: CASE EVENT DATE: 201806
